FAERS Safety Report 7888522-2 (Version None)
Quarter: 2011Q4

REPORT INFORMATION
  Report Type: 
  Country: None (occurrence: None)
  Receive Date: 20111101
  Receipt Date: 20111017
  Transmission Date: 20120403
  Serious: Yes (Hospitalization)
  Sender: FDA-Public Use
  Company Number: 2011MA015269

PATIENT
  Age: 50 Year
  Sex: Female

DRUGS (2)
  1. CLONAZEPAM [Suspect]
     Indication: INSOMNIA
     Dosage: 5 MG;HS
  2. MIRTAZAPINE [Suspect]
     Indication: DEPRESSION
     Dosage: 45 MG;QD;

REACTIONS (12)
  - QRS AXIS ABNORMAL [None]
  - LUNG CONSOLIDATION [None]
  - TRICUSPID VALVE INCOMPETENCE [None]
  - PULMONARY ARTERY THROMBOSIS [None]
  - ATELECTASIS [None]
  - LUNG INFECTION [None]
  - PULMONARY EMBOLISM [None]
  - ANAEMIA [None]
  - DEEP VEIN THROMBOSIS [None]
  - ELECTROCARDIOGRAM T WAVE ABNORMAL [None]
  - RIGHT VENTRICULAR HYPERTROPHY [None]
  - PULMONARY HYPERTENSION [None]
